FAERS Safety Report 5414613-1 (Version None)
Quarter: 2007Q3

REPORT INFORMATION
  Report Type: 
  Country: None (occurrence: None)
  Receive Date: 20070813
  Receipt Date: 20070731
  Transmission Date: 20080115
  Serious: Yes (Death)
  Sender: FDA-Public Use
  Company Number: 2007US001838

PATIENT
  Age: 75 Year
  Sex: Female

DRUGS (3)
  1. PROGRAF [Suspect]
     Indication: LIVER TRANSPLANT REJECTION
  2. DACLIZUMAB (DACLIZUMAB) [Concomitant]
  3. CORTICOSTEROIDS [Concomitant]

REACTIONS (3)
  - DISEASE RECURRENCE [None]
  - HEPATITIS C [None]
  - LIVER TRANSPLANT REJECTION [None]
